FAERS Safety Report 7769574-7 (Version None)
Quarter: 2011Q3

REPORT INFORMATION
  Report Type: 
  Country: None (occurrence: None)
  Receive Date: 20110922
  Receipt Date: 20100115
  Transmission Date: 20111222
  Serious: No
  Sender: FDA-Public Use
  Company Number: US-ASTRAZENECA-2009SE15655

PATIENT
  Age: 17890 Day
  Sex: Female
  Weight: 130.6 kg

DRUGS (14)
  1. SEROQUEL [Suspect]
     Indication: BIPOLAR DISORDER
     Route: 048
     Dates: start: 20010101, end: 20080601
  2. WELLBUTRIN SR [Concomitant]
     Dates: start: 20011204
  3. PROZAC [Concomitant]
     Dates: start: 20011204
  4. SEROQUEL [Suspect]
     Route: 048
     Dates: start: 20011204
  5. SEROQUEL [Suspect]
     Route: 048
     Dates: start: 20011204
  6. RISPERDAL [Concomitant]
     Dates: start: 20030101
  7. ZYPREXA [Concomitant]
     Dates: start: 20030101
  8. TOPAMAX [Concomitant]
     Dosage: 25 MG-100 MG
     Dates: start: 20011204
  9. SEROQUEL [Suspect]
     Route: 048
     Dates: start: 20011204
  10. ABILIFY [Concomitant]
     Dates: start: 20030101
  11. GEODON [Concomitant]
     Dates: start: 20030101
  12. SEROQUEL [Suspect]
     Indication: DEPRESSION
     Route: 048
     Dates: start: 20010101, end: 20080601
  13. PROZAC [Concomitant]
     Dates: start: 20011204
  14. SEROQUEL [Suspect]
     Indication: SCHIZOPHRENIA
     Route: 048
     Dates: start: 20010101, end: 20080601

REACTIONS (3)
  - BLOOD TRIGLYCERIDES INCREASED [None]
  - TYPE 2 DIABETES MELLITUS [None]
  - OBESITY [None]
